FAERS Safety Report 5708584-8 (Version None)
Quarter: 2008Q2

REPORT INFORMATION
  Report Type: 
  Country: None (occurrence: None)
  Receive Date: 20080417
  Receipt Date: 20080410
  Transmission Date: 20081010
  Serious: Yes (Other)
  Sender: FDA-Public Use
  Company Number: US-PFIZER INC-2008032979

PATIENT
  Sex: Male
  Weight: 100 kg

DRUGS (1)
  1. DETROL LA [Suspect]
     Indication: INCONTINENCE

REACTIONS (1)
  - RENAL PAIN [None]
